FAERS Safety Report 9619607 (Version 1)
Quarter: 2013Q4

REPORT INFORMATION
  Report Type: Spontaneous
  Country: IT (occurrence: IT)
  Receive Date: 20131014
  Receipt Date: 20131014
  Transmission Date: 20140711
  Serious: Yes (Hospitalization, Disabling)
  Sender: FDA-Public Use
  Company Number: IT-ROXANE LABORATORIES, INC.-2013-RO-01648RO

PATIENT
  Sex: Female

DRUGS (5)
  1. LITHIUM CARBONATE [Suspect]
     Indication: BIPOLAR I DISORDER
     Dates: end: 201012
  2. QUETIAPINE FUMARATE [Suspect]
     Indication: BIPOLAR I DISORDER
     Dosage: 200 MG
  3. TRIAZOLAM [Suspect]
     Indication: BIPOLAR I DISORDER
     Dosage: 1 MG
  4. VENLAFAXINE [Suspect]
     Indication: BIPOLAR I DISORDER
     Dosage: 150 MG
  5. MEMANTINE [Suspect]
     Indication: BIPOLAR I DISORDER
     Dosage: 30 MG

REACTIONS (2)
  - Mania [Recovered/Resolved]
  - Tremor [Unknown]
